FAERS Safety Report 24752713 (Version 2)
Quarter: 2024Q4

REPORT INFORMATION
  Report Type: Spontaneous
  Country: KR (occurrence: KR)
  Receive Date: 20241219
  Receipt Date: 20241226
  Transmission Date: 20250115
  Serious: Yes (Other)
  Sender: ALCON
  Company Number: KR-ALCON LABORATORIES-ALC2024KR005404

PATIENT
  Age: 60 Year
  Sex: Male

DRUGS (2)
  1. ISOPTO ATROPINE [Suspect]
     Active Substance: ATROPINE SULFATE
     Indication: Pupil dilation procedure
     Dosage: 1 DROP AT 15-MINUTES INTERVALS
     Route: 047
  2. PHENYLEPHRINE HYDROCHLORIDE\TROPICAMIDE [Suspect]
     Active Substance: PHENYLEPHRINE HYDROCHLORIDE\TROPICAMIDE
     Indication: Mydriasis
     Dosage: 15-MINUTE INTERVALS STARTING 2 HOURS BEFORE SURGERY
     Route: 047

REACTIONS (1)
  - Anticholinergic syndrome [Recovered/Resolved]
